FAERS Safety Report 5870660-7 (Version None)
Quarter: 2008Q3

REPORT INFORMATION
  Report Type: 
  Country: None (occurrence: None)
  Receive Date: 20080904
  Receipt Date: 20080828
  Transmission Date: 20090109
  Serious: Yes (Death, Other)
  Sender: FDA-Public Use
  Company Number: PHHY2008JP18703

PATIENT
  Age: 46 Year
  Sex: Male
  Weight: 51 kg

DRUGS (6)
  1. NEORAL [Suspect]
     Indication: RENAL TRANSPLANT
     Dosage: UNK
  2. SIMULECT [Suspect]
     Indication: RENAL TRANSPLANT
     Dosage: 20 MG
     Route: 042
  3. PREDNISOLONE [Suspect]
     Indication: RENAL TRANSPLANT
     Dosage: UNK
     Route: 042
  4. CELLCEPT [Suspect]
     Indication: RENAL TRANSPLANT
     Route: 048
  5. PROGRAF [Suspect]
     Indication: RENAL TRANSPLANT
     Route: 042
  6. BREDININ [Suspect]
     Indication: RENAL TRANSPLANT
     Route: 048

REACTIONS (20)
  - BLOOD CREATININE INCREASED [None]
  - CARDIO-RESPIRATORY ARREST [None]
  - CIRCULATORY COLLAPSE [None]
  - CYTOMEGALOVIRUS INFECTION [None]
  - DEHYDRATION [None]
  - DIARRHOEA [None]
  - GASTROINTESTINAL EROSION [None]
  - GASTROINTESTINAL FUNGAL INFECTION [None]
  - HYPERKALAEMIA [None]
  - ILEUS [None]
  - INTESTINAL ISCHAEMIA [None]
  - KIDNEY TRANSPLANT REJECTION [None]
  - LARGE INTESTINE CARCINOMA [None]
  - MALAISE [None]
  - MALIGNANT TUMOUR EXCISION [None]
  - METASTASES TO LIVER [None]
  - OCCULT BLOOD POSITIVE [None]
  - PULMONARY OEDEMA [None]
  - RESUSCITATION [None]
  - URINE OUTPUT DECREASED [None]
